APPROVED DRUG PRODUCT: POTASSIUM CITRATE
Active Ingredient: POTASSIUM CITRATE
Strength: 10MEQ
Dosage Form/Route: TABLET, EXTENDED RELEASE;ORAL
Application: A212779 | Product #001 | TE Code: AB
Applicant: ANI PHARMACEUTICALS INC
Approved: Jan 14, 2020 | RLD: No | RS: No | Type: RX